FAERS Safety Report 17324549 (Version 1)
Quarter: 2020Q1

REPORT INFORMATION
  Report Type: Spontaneous
  Country: US (occurrence: US)
  Receive Date: 20200124
  Receipt Date: 20200124
  Transmission Date: 20200409
  Serious: Yes (Life-Threatening, Hospitalization, Disabling, Other)
  Sender: FDA-Public Use
  Company Number: None

PATIENT
  Age: 65 Year
  Sex: Male
  Weight: 165.6 kg

DRUGS (6)
  1. BLACK CHERRY EXTRACT [Concomitant]
  2. VITAMIN B COMPLEX [Concomitant]
     Active Substance: CYANOCOBALAMIN\DEXPANTHENOL\NIACINAMIDE\PYRIDOXINE HYDROCHLORIDE\RIBOFLAVIN 5^-PHOSPHATE SODIUM\THIAMINE HYDROCHLORIDE\VITAMIN B COMPLEX
  3. TUMERIC [Concomitant]
     Active Substance: HERBALS\TURMERIC
  4. INSULIN [Concomitant]
     Active Substance: INSULIN NOS
  5. VASCEPA [Suspect]
     Active Substance: ICOSAPENT ETHYL
     Indication: HYPERTRIGLYCERIDAEMIA
     Dosage: ?          QUANTITY:1 CAPSULE(S);?
     Route: 048
     Dates: start: 20200118, end: 20200120
  6. MULTI VIT [Concomitant]
     Active Substance: VITAMINS

REACTIONS (6)
  - Abdominal pain [None]
  - Insomnia [None]
  - Pollakiuria [None]
  - Dyspnoea [None]
  - Frequent bowel movements [None]
  - Thrombosis [None]

NARRATIVE: CASE EVENT DATE: 20200119
